FAERS Safety Report 4369007-7 (Version None)
Quarter: 2004Q2

REPORT INFORMATION
  Report Type: 
  Country: None (occurrence: None)
  Receive Date: 20040602
  Receipt Date: 20040602
  Transmission Date: 20050107
  Serious: Yes (Other)
  Sender: FDA-Public Use
  Company Number: None

PATIENT
  Age: 57 Year
  Sex: Male

DRUGS (5)
  1. PREVACID [Suspect]
     Indication: GASTROOESOPHAGEAL REFLUX DISEASE
     Dosage: ONE PO QD
     Route: 048
     Dates: start: 20040524, end: 20040527
  2. LISINOPRIL [Concomitant]
  3. DOXEPIN HCL [Concomitant]
  4. ASPIRIN [Concomitant]
  5. LORAZEPAM [Concomitant]

REACTIONS (2)
  - DYSPHAGIA [None]
  - PAIN [None]
